FAERS Safety Report 15782770 (Version 1)
Quarter: 2019Q1

REPORT INFORMATION
  Report Type: Spontaneous
  Country: MX (occurrence: MX)
  Receive Date: 20190102
  Receipt Date: 20190102
  Transmission Date: 20190417
  Serious: Yes (Disabling)
  Sender: FDA-Public Use
  Company Number: MX-ASTRAZENECA-2018SF68452

PATIENT
  Age: 14805 Day
  Sex: Female
  Weight: 62 kg

DRUGS (1)
  1. LYNPARZA [Suspect]
     Active Substance: OLAPARIB
     Indication: OVARIAN CANCER
     Dosage: 800.0MG UNKNOWN
     Route: 048
     Dates: start: 20181012, end: 20181207

REACTIONS (5)
  - Fatigue [Recovering/Resolving]
  - Somnolence [Unknown]
  - Ascites [Recovered/Resolved]
  - Drug interaction [Unknown]
  - Thirst [Recovering/Resolving]

NARRATIVE: CASE EVENT DATE: 20181013
